FAERS Safety Report 9832646 (Version 1)
Quarter: 2014Q1

REPORT INFORMATION
  Report Type: Spontaneous
  Country: AU (occurrence: AU)
  Receive Date: 20140121
  Receipt Date: 20140121
  Transmission Date: 20141002
  Serious: No
  Sender: FDA-Public Use
  Company Number: AU-B.I. PHARMACEUTICALS,INC./RIDGEFIELD-2014-BI-02496AU

PATIENT
  Age: 50 Year
  Sex: Female

DRUGS (1)
  1. LINAGLIPTIN [Suspect]
     Dates: start: 201310, end: 201310

REACTIONS (1)
  - Lip swelling [Unknown]
